FAERS Safety Report 20182758 (Version 1)
Quarter: 2021Q4

REPORT INFORMATION
  Report Type: Spontaneous
  Country: US (occurrence: None)
  Receive Date: 20211214
  Receipt Date: 20211214
  Transmission Date: 20220303
  Serious: Yes (Other)
  Sender: FDA-Public Use
  Company Number: 2021A857112

PATIENT
  Age: 78 Year
  Sex: Male
  Weight: 81.6 kg

DRUGS (3)
  1. CRESTOR [Suspect]
     Active Substance: ROSUVASTATIN CALCIUM
     Indication: Product used for unknown indication
     Route: 048
  2. KEPPRA [Concomitant]
     Active Substance: LEVETIRACETAM
  3. TRIMISTA [Concomitant]

REACTIONS (6)
  - Renal cancer [Unknown]
  - Seizure [Unknown]
  - Blood pressure abnormal [Unknown]
  - Prostatic disorder [Unknown]
  - Product use issue [Unknown]
  - Wrong technique in product usage process [Unknown]
